FAERS Safety Report 24747895 (Version 1)
Quarter: 2024Q4

REPORT INFORMATION
  Report Type: Report from Study
  Country: US (occurrence: US)
  Receive Date: 20241218
  Receipt Date: 20241218
  Transmission Date: 20250114
  Serious: Yes (Hospitalization)
  Sender: ABBVIE
  Company Number: US-ABBVIE-6046141

PATIENT
  Age: 58 Year
  Sex: Male

DRUGS (1)
  1. CREON [Suspect]
     Active Substance: PANCRELIPASE AMYLASE\PANCRELIPASE LIPASE\PANCRELIPASE PROTEASE
     Indication: Pancreatic failure
     Route: 048
     Dates: start: 2021

REACTIONS (3)
  - Oropharyngeal pain [Recovering/Resolving]
  - Lymphadenopathy [Unknown]
  - Purulent discharge [Unknown]

NARRATIVE: CASE EVENT DATE: 20241201
